FAERS Safety Report 9293031 (Version 1)
Quarter: 2013Q2

REPORT INFORMATION
  Report Type: Spontaneous
  Country: US (occurrence: None)
  Receive Date: 20130515
  Receipt Date: 20130515
  Transmission Date: 20140414
  Serious: Yes (Hospitalization)
  Sender: FDA-Public Use
  Company Number: None

PATIENT
  Age: 64 Year
  Sex: Female
  Weight: 63.5 kg

DRUGS (1)
  1. CORICIDEN HP [Suspect]
     Indication: SEASONAL ALLERGY
     Route: 048
     Dates: start: 20121203, end: 20121203

REACTIONS (1)
  - Convulsion [None]
